FAERS Safety Report 15922417 (Version 1)
Quarter: 2019Q1

REPORT INFORMATION
  Report Type: Spontaneous
  Country: US (occurrence: US)
  Receive Date: 20190115
  Receipt Date: 20190115
  Transmission Date: 20190417
  Serious: No
  Sender: FDA-Public Use
  Company Number: None

PATIENT
  Age: 76 Year
  Sex: Male

DRUGS (11)
  1. WARFARIN [Concomitant]
     Active Substance: WARFARIN
  2. ASPIRIN. [Concomitant]
     Active Substance: ASPIRIN
  3. BICALUTAMIDE. [Concomitant]
     Active Substance: BICALUTAMIDE
  4. ATENOLOL. [Concomitant]
     Active Substance: ATENOLOL
  5. XGEVA [Concomitant]
     Active Substance: DENOSUMAB
  6. FENOFIBRATE. [Concomitant]
     Active Substance: FENOFIBRATE
  7. LISINOPRIL. [Concomitant]
     Active Substance: LISINOPRIL
  8. ATORVASTATIN [Concomitant]
     Active Substance: ATORVASTATIN
  9. PREDNISONE. [Concomitant]
     Active Substance: PREDNISONE
  10. ZYTIGA [Suspect]
     Active Substance: ABIRATERONE ACETATE
     Indication: PROSTATE CANCER
     Route: 048
     Dates: start: 20181127
  11. CELEBREX [Concomitant]
     Active Substance: CELECOXIB

REACTIONS (1)
  - Diarrhoea [None]
